FAERS Safety Report 4417123-3 (Version None)
Quarter: 2004Q3

REPORT INFORMATION
  Report Type: 
  Country: None (occurrence: None)
  Receive Date: 20040802
  Receipt Date: 20040720
  Transmission Date: 20050211
  Serious: No
  Sender: FDA-Public Use
  Company Number: 04P-163-0267554-00

PATIENT
  Age: 32 Year
  Sex: Female

DRUGS (1)
  1. DEPAKOTE 500 MG (DEPAKOTE) (DIVALPROEX SODIUIM) (DIVALPROEX SODIUM) [Suspect]
     Indication: BIPOLAR DISORDER
     Dosage: 500 MG, 3 IN 1 D, PER ORAL
     Route: 048

REACTIONS (1)
  - ABORTION SPONTANEOUS [None]
